FAERS Safety Report 16254651 (Version 1)
Quarter: 2019Q2

REPORT INFORMATION
  Report Type: Spontaneous
  Country: GB (occurrence: GB)
  Receive Date: 20190430
  Receipt Date: 20190430
  Transmission Date: 20190711
  Serious: Yes (Death)
  Sender: FDA-Public Use
  Company Number: GB-SA-2019SA114847

PATIENT
  Age: 51 Year
  Sex: Male

DRUGS (1)
  1. CABAZITAXEL [Suspect]
     Active Substance: CABAZITAXEL
     Dosage: UNK, UNK

REACTIONS (2)
  - Myocardial infarction [Fatal]
  - Migraine [Recovered/Resolved]
